FAERS Safety Report 6742537-6 (Version None)
Quarter: 2010Q2

REPORT INFORMATION
  Report Type: 
  Country: None (occurrence: None)
  Receive Date: 20100524
  Receipt Date: 20091119
  Transmission Date: 20101027
  Serious: Yes (Hospitalization)
  Sender: FDA-Public Use
  Company Number: 2009BH017800

PATIENT
  Age: 53 Year
  Sex: Female

DRUGS (6)
  1. CYTOXAN [Suspect]
     Indication: BREAST CANCER METASTATIC
     Dosage: ;EVERY 3 WK;IV
     Route: 042
     Dates: start: 20090520
  2. TAXOTERE [Suspect]
     Indication: BREAST CANCER METASTATIC
     Dosage: ;EVERY 3 WK;IV
     Route: 042
     Dates: start: 20090520
  3. NEUPOGEN [Suspect]
     Indication: CHEMOTHERAPY
     Dates: start: 20090523
  4. DEXAMETHASONE [Concomitant]
  5. ATENOLOL [Concomitant]
  6. HYDROCHLOROTHIAZIDE [Concomitant]

REACTIONS (1)
  - RASH PRURITIC [None]
